FAERS Safety Report 5807882-7 (Version None)
Quarter: 2008Q3

REPORT INFORMATION
  Report Type: 
  Country: None (occurrence: None)
  Receive Date: 20080711
  Receipt Date: 20080709
  Transmission Date: 20090109
  Serious: Yes (Hospitalization)
  Sender: FDA-Public Use
  Company Number: US-BOEHRINGER INGELHEIM GMBH, GERMANY-2008-BP-10694BP

PATIENT
  Sex: Female

DRUGS (11)
  1. COMBIVENT [Suspect]
     Indication: RESPIRATORY TRACT CONGESTION
     Dates: start: 20080608
  2. FLOVENT HFA [Suspect]
     Indication: RESPIRATORY TRACT CONGESTION
     Route: 055
  3. ADVAIR DISKUS 100/50 [Suspect]
     Indication: RESPIRATORY TRACT CONGESTION
     Route: 055
     Dates: start: 20080608
  4. AUGMENTIN '125' [Suspect]
     Indication: RESPIRATORY TRACT CONGESTION
     Route: 048
     Dates: start: 20080608, end: 20080613
  5. PREDNISOLONE [Suspect]
     Indication: RESPIRATORY TRACT CONGESTION
     Dates: start: 20080608, end: 20080613
  6. MAGNESIUM OXIDE [Concomitant]
  7. POTASSIUM SALT [Concomitant]
  8. TORSEMIDE [Concomitant]
  9. ESOMEPRAZOLE MAGNESIUM [Concomitant]
  10. LOSARTAN POTASSIUM [Concomitant]
  11. ASPIRIN [Concomitant]

REACTIONS (7)
  - CHEST DISCOMFORT [None]
  - CORONARY ARTERY OCCLUSION [None]
  - DIZZINESS [None]
  - GINGIVAL PAIN [None]
  - HEART RATE DECREASED [None]
  - HEART VALVE INCOMPETENCE [None]
  - OVERDOSE [None]
